FAERS Safety Report 5295329-1 (Version None)
Quarter: 2007Q2

REPORT INFORMATION
  Report Type: 
  Country: None (occurrence: None)
  Receive Date: 20070405
  Receipt Date: 20070327
  Transmission Date: 20071010
  Serious: Yes (Other)
  Sender: FDA-Public Use
  Company Number: 237948

PATIENT
  Age: 42 Year
  Sex: Female
  Weight: 54.4 kg

DRUGS (3)
  1. HERCEPTIN [Suspect]
     Indication: BREAST CANCER
     Dosage: 330 MG, Q3W, INTRAVENOUS
     Route: 042
     Dates: start: 20060621
  2. ARIMIDEX [Concomitant]
  3. CALCIUM D 500 (CALCIUM CARBONATE, CHOLECALCIFEROL) [Concomitant]

REACTIONS (2)
  - CONDITION AGGRAVATED [None]
  - MITRAL VALVE INCOMPETENCE [None]
